FAERS Safety Report 9340939 (Version 4)
Quarter: 2013Q3

REPORT INFORMATION
  Report Type: Spontaneous
  Country: AT (occurrence: None)
  Receive Date: 20130604
  Receipt Date: 20130911
  Transmission Date: 20140515
  Serious: Yes (Other)
  Sender: FDA-Public Use
  Company Number: 2013036358

PATIENT
  Age: 4 Year
  Sex: Female

DRUGS (1)
  1. PRIVIGEN [Suspect]
     Indication: HYPOGAMMAGLOBULINAEMIA
     Route: 042
     Dates: start: 20130513, end: 20130513

REACTIONS (6)
  - Suspected transmission of an infectious agent via product [None]
  - Hepatitis B core antibody positive [None]
  - Haematocrit decreased [None]
  - Haemoglobin decreased [None]
  - Platelet count decreased [None]
  - Red blood cell count decreased [None]
